FAERS Safety Report 5356160-1 (Version None)
Quarter: 2007Q2

REPORT INFORMATION
  Report Type: 
  Country: None (occurrence: None)
  Receive Date: 20070613
  Receipt Date: 20070604
  Transmission Date: 20071010
  Serious: Yes (Hospitalization)
  Sender: FDA-Public Use
  Company Number: PHHO2007FR09432

PATIENT
  Age: 20 Year
  Sex: Female

DRUGS (3)
  1. RAD [Suspect]
     Indication: RENAL TRANSPLANT
     Dosage: 0.75 MG, BID
     Route: 048
     Dates: start: 20060611
  2. NEORAL [Suspect]
     Indication: RENAL TRANSPLANT
     Route: 048
  3. CORTANCYL [Concomitant]
     Indication: RENAL TRANSPLANT

REACTIONS (3)
  - GLOMERULONEPHROPATHY [None]
  - HAEMATURIA [None]
  - PROTEINURIA [None]
